FAERS Safety Report 25466538 (Version 1)
Quarter: 2025Q2

REPORT INFORMATION
  Report Type: Spontaneous
  Country: GE (occurrence: GE)
  Receive Date: 20250623
  Receipt Date: 20250623
  Transmission Date: 20250717
  Serious: Yes (Hospitalization)
  Sender: ACCORD
  Company Number: GE-Accord-491366

PATIENT
  Age: 36 Year
  Sex: Female

DRUGS (1)
  1. FINGOLIMOD [Suspect]
     Active Substance: FINGOLIMOD
     Indication: Relapsing multiple sclerosis

REACTIONS (5)
  - Seborrhoeic keratosis [Recovered/Resolved]
  - Melanocytic naevus [Recovered/Resolved]
  - Papilloma [Recovered/Resolved]
  - Papilloma viral infection [Recovered/Resolved]
  - Lymphopenia [Recovered/Resolved]
